FAERS Safety Report 8346556-8 (Version None)
Quarter: 2012Q2

REPORT INFORMATION
  Report Type: 
  Country: None (occurrence: None)
  Receive Date: 20120509
  Receipt Date: 20120430
  Transmission Date: 20120825
  Serious: Yes (Other)
  Sender: FDA-Public Use
  Company Number: PHHY2012FR009292

PATIENT
  Sex: Female
  Weight: 70 kg

DRUGS (7)
  1. PROGRAF [Concomitant]
     Dosage: 5 MG, UNK
     Dates: start: 20090122
  2. MYCOPHENOLATE MOFETIL (CELLCEPT) [Suspect]
     Dosage: 1500 MG
     Dates: start: 20080814, end: 20100106
  3. CORTICOSTEROIDS [Concomitant]
     Route: 048
     Dates: start: 20080909
  4. PROGRAF [Concomitant]
     Dosage: UNK UKN, UNK
     Dates: start: 20120430
  5. CERTICAN [Suspect]
     Dosage: PER OS
     Dates: start: 20090504
  6. CERTICAN [Suspect]
     Dosage: UNK UKN, UNK
     Dates: start: 20120430
  7. NEORAL [Suspect]
     Dosage: 400 MG, DAILY
     Dates: start: 20080814, end: 20090122

REACTIONS (4)
  - ARTERIOSCLEROSIS CORONARY ARTERY [None]
  - CORONARY ARTERY DISEASE [None]
  - DRUG INEFFECTIVE [None]
  - HEART TRANSPLANT REJECTION [None]
